FAERS Safety Report 9915563 (Version 1)
Quarter: 2014Q1

REPORT INFORMATION
  Report Type: Report from Study
  Country: PT (occurrence: PT)
  Receive Date: 20140221
  Receipt Date: 20140221
  Transmission Date: 20141002
  Serious: Yes (Other)
  Sender: FDA-Public Use
  Company Number: PT-ROCHE-1350573

PATIENT
  Sex: 0

DRUGS (2)
  1. CAPECITABINE [Suspect]
     Indication: RECTAL CANCER
     Dosage: 5 DAYS PER WEEK
     Route: 065
  2. OXALIPLATIN [Suspect]
     Indication: RECTAL CANCER
     Route: 065

REACTIONS (4)
  - Anaemia [Unknown]
  - Leukopenia [Unknown]
  - Gastrointestinal toxicity [Unknown]
  - Dermatitis [Unknown]
